FAERS Safety Report 22740283 (Version 3)
Quarter: 2024Q3

REPORT INFORMATION
  Report Type: Spontaneous
  Country: US (occurrence: US)
  Receive Date: 20230723
  Receipt Date: 20240919
  Transmission Date: 20241017
  Serious: No
  Sender: AMGEN
  Company Number: US-AMGEN-USASP2023127398

PATIENT
  Age: 73 Year
  Sex: Male

DRUGS (5)
  1. REPATHA [Suspect]
     Active Substance: EVOLOCUMAB
     Indication: Low density lipoprotein increased
     Dosage: 140 MILLIGRAM, Q2WK
     Route: 065
     Dates: start: 20230606, end: 20230626
  2. REPATHA [Suspect]
     Active Substance: EVOLOCUMAB
     Indication: Blood cholesterol increased
  3. ATORVASTATIN [Concomitant]
     Active Substance: ATORVASTATIN
     Dosage: 20 MILLIGRAM
  4. ATORVASTATIN [Concomitant]
     Active Substance: ATORVASTATIN
     Dosage: 40 MILLIGRAM
  5. RETACRIT [Concomitant]
     Active Substance: EPOETIN ALFA-EPBX

REACTIONS (3)
  - Fatigue [Not Recovered/Not Resolved]
  - Oral mucosal blistering [Recovered/Resolved]
  - Tongue blistering [Recovered/Resolved]

NARRATIVE: CASE EVENT DATE: 20230627
